FAERS Safety Report 15545797 (Version 2)
Quarter: 2018Q4

REPORT INFORMATION
  Report Type: Spontaneous
  Country: CA (occurrence: CA)
  Receive Date: 20181024
  Receipt Date: 20181026
  Transmission Date: 20190205
  Serious: Yes (Other)
  Sender: FDA-Public Use
  Company Number: CA-PFIZER INC-2018433316

PATIENT
  Age: 27 Year
  Sex: Male
  Weight: 128.2 kg

DRUGS (2)
  1. CIPROFLOXACIN HCL [Suspect]
     Active Substance: CIPROFLOXACIN HYDROCHLORIDE
     Dosage: UNK
     Dates: start: 201809
  2. FLAGYL [Concomitant]
     Active Substance: METRONIDAZOLE\METRONIDAZOLE HYDROCHLORIDE
     Dosage: UNK
     Dates: start: 201809

REACTIONS (6)
  - Colitis ulcerative [Not Recovered/Not Resolved]
  - Oedema [Unknown]
  - Diarrhoea haemorrhagic [Unknown]
  - Colitis [Unknown]
  - Abdominal pain [Unknown]
  - Anaemia [Unknown]
